FAERS Safety Report 13782217 (Version 1)
Quarter: 2017Q3

REPORT INFORMATION
  Report Type: Spontaneous
  Country: US (occurrence: US)
  Receive Date: 20170724
  Receipt Date: 20170724
  Transmission Date: 20171127
  Serious: Yes (Hospitalization)
  Sender: FDA-Public Use
  Company Number: US-FRESENIUS MEDICAL CARE RENAL THERAPIES GROUP-FMC-1707-000784

PATIENT
  Age: 77 Year
  Sex: Male

DRUGS (10)
  1. DOCUSATE [Concomitant]
     Active Substance: DOCUSATE
  2. CALCITRIOL. [Concomitant]
     Active Substance: CALCITRIOL
  3. AMLODIPINE [Concomitant]
     Active Substance: AMLODIPINE BESYLATE
  4. GLIMEPIRIDE. [Concomitant]
     Active Substance: GLIMEPIRIDE
  5. DELFLEX [Suspect]
     Active Substance: CALCIUM CHLORIDE\DEXTROSE\MAGNESIUM CHLORIDE\SODIUM CHLORIDE\SODIUM LACTATE
     Indication: END STAGE RENAL DISEASE
     Route: 033
  6. ASPIRIN. [Concomitant]
     Active Substance: ASPIRIN
  7. ALLOPURINOL. [Concomitant]
     Active Substance: ALLOPURINOL
  8. INSULIN GLARGINE [Concomitant]
     Active Substance: INSULIN GLARGINE
  9. INSULIN LISPRO [Concomitant]
     Active Substance: INSULIN LISPRO
  10. CARVEDILOL. [Concomitant]
     Active Substance: CARVEDILOL

REACTIONS (1)
  - Hyperglycaemia [Recovered/Resolved]

NARRATIVE: CASE EVENT DATE: 20170622
